FAERS Safety Report 12776135 (Version 2)
Quarter: 2016Q4

REPORT INFORMATION
  Report Type: Spontaneous
  Country: US (occurrence: US)
  Receive Date: 20160923
  Receipt Date: 20161003
  Transmission Date: 20170207
  Serious: Yes (Hospitalization)
  Sender: FDA-Public Use
  Company Number: US-PFIZER INC-2016377943

PATIENT
  Age: 76 Year
  Sex: Male
  Weight: 78.93 kg

DRUGS (12)
  1. INLYTA [Suspect]
     Active Substance: AXITINIB
     Indication: RENAL CANCER METASTATIC
     Dosage: 5 MG, 2X/DAY
     Route: 048
     Dates: start: 2015
  2. OLANZAPINE. [Concomitant]
     Active Substance: OLANZAPINE
     Indication: SLEEP DISORDER
     Dosage: UNK UNK, 1X/DAY, (1 TIME A DAY AT BED TIME)
  3. LEVOTHYROXINE SODIUM. [Suspect]
     Active Substance: LEVOTHYROXINE SODIUM
     Indication: THYROID DISORDER
     Dosage: 75 UG, 1X/DAY
     Route: 048
  4. LISINOPRIL. [Suspect]
     Active Substance: LISINOPRIL
     Indication: HYPERTENSION
     Dosage: 20 MG, 2X/DAY
     Dates: start: 2015
  5. OLANZAPINE. [Concomitant]
     Active Substance: OLANZAPINE
     Indication: NAUSEA
  6. OMEPRAZOLE. [Suspect]
     Active Substance: OMEPRAZOLE
     Indication: HYPERCHLORHYDRIA
     Dosage: 20 MG, DAILY
     Dates: start: 2015
  7. RITALIN [Concomitant]
     Active Substance: METHYLPHENIDATE HYDROCHLORIDE
     Dosage: 5 MG, DAILY
     Dates: end: 20160905
  8. SENNA S [Concomitant]
     Active Substance: DOCUSATE SODIUM\SENNA LEAF
     Indication: CONSTIPATION
     Dosage: UNK UNK, 1X/DAY, (1 TIMES A DAY (BED TIME))
  9. INLYTA [Suspect]
     Active Substance: AXITINIB
     Dosage: UNK
     Dates: start: 20160830
  10. PREDNISONE. [Suspect]
     Active Substance: PREDNISONE
     Indication: ADRENAL DISORDER
     Dosage: 5MG 1 A DAY 2 IF SICK
  11. RITALIN [Concomitant]
     Active Substance: METHYLPHENIDATE HYDROCHLORIDE
     Dosage: 10 MG, DAILY
     Dates: end: 20160905
  12. OLANZAPINE. [Concomitant]
     Active Substance: OLANZAPINE
     Indication: APPETITE DISORDER

REACTIONS (10)
  - Somnolence [Not Recovered/Not Resolved]
  - Eye disorder [Not Recovered/Not Resolved]
  - Disorientation [Recovering/Resolving]
  - Asthenia [Recovering/Resolving]
  - Dysphonia [Not Recovered/Not Resolved]
  - Malaise [Recovering/Resolving]
  - Thyroid disorder [Recovering/Resolving]
  - Muscular weakness [Not Recovered/Not Resolved]
  - Gait disturbance [Not Recovered/Not Resolved]
  - Adrenal disorder [Recovering/Resolving]
